FAERS Safety Report 4330127-4 (Version None)
Quarter: 2004Q1

REPORT INFORMATION
  Report Type: 
  Country: None (occurrence: None)
  Receive Date: 20040329
  Receipt Date: 20040130
  Transmission Date: 20041129
  Serious: No
  Sender: FDA-Public Use
  Company Number: 04P-163-0248968-00

PATIENT
  Age: 79 Year
  Sex: Female
  Weight: 68.0396 kg

DRUGS (4)
  1. HUMIRA [Suspect]
     Indication: RHEUMATOID ARTHRITIS
     Dosage: 40 MG, 1 IN 2 WK, SUBCUTANEOUS
     Route: 058
     Dates: start: 20030601, end: 20031031
  2. LISINOPRIL [Concomitant]
  3. HYDROCODONE [Concomitant]
  4. OXYCODONE [Concomitant]

REACTIONS (2)
  - INJECTION SITE BURNING [None]
  - PRURITUS GENERALISED [None]
